FAERS Safety Report 6046342-8 (Version None)
Quarter: 2009Q1

REPORT INFORMATION
  Report Type: 
  Country: None (occurrence: None)
  Receive Date: 20090122
  Receipt Date: 20090116
  Transmission Date: 20090719
  Serious: Yes (Other)
  Sender: FDA-Public Use
  Company Number: NL-AMGEN-US306128

PATIENT
  Age: 62 Year
  Sex: Female
  Weight: 85 kg

DRUGS (3)
  1. ENBREL [Suspect]
     Indication: RHEUMATOID ARTHRITIS
     Dates: start: 20080721, end: 20080726
  2. IBUPROFEN [Concomitant]
     Route: 048
     Dates: start: 20060101
  3. PREDNISOLONE [Concomitant]
     Dates: start: 20080215

REACTIONS (1)
  - POLYNEUROPATHY [None]
